FAERS Safety Report 6174811-9 (Version None)
Quarter: 2009Q2

REPORT INFORMATION
  Report Type: 
  Country: None (occurrence: None)
  Receive Date: 20090430
  Receipt Date: 20081117
  Transmission Date: 20091009
  Serious: No
  Sender: FDA-Public Use
  Company Number: US-ASTRAZENECA-2008UW25754

PATIENT
  Age: 12874 Day
  Sex: Female
  Weight: 81.6 kg

DRUGS (1)
  1. NEXIUM [Suspect]
     Indication: HYPERCHLORHYDRIA
     Route: 048
     Dates: start: 20081110

REACTIONS (2)
  - CHEST PAIN [None]
  - PALPITATIONS [None]
